FAERS Safety Report 6152725-8 (Version None)
Quarter: 2009Q2

REPORT INFORMATION
  Report Type: 
  Country: None (occurrence: None)
  Receive Date: 20090413
  Receipt Date: 20090407
  Transmission Date: 20091009
  Serious: Yes (Hospitalization)
  Sender: FDA-Public Use
  Company Number: FR-ASTRAZENECA-2009CG00652

PATIENT
  Age: 79 Year
  Sex: Female

DRUGS (2)
  1. MOPRAL [Suspect]
     Indication: GASTROINTESTINAL INJURY
     Route: 048
     Dates: start: 20080702
  2. CELEBREX [Suspect]
     Indication: OSTEOARTHRITIS
     Route: 048
     Dates: start: 20080819, end: 20080919

REACTIONS (3)
  - DERMATITIS EXFOLIATIVE [None]
  - DERMATOMYOSITIS [None]
  - PRURITUS [None]
